FAERS Safety Report 18048867 (Version 1)
Quarter: 2020Q3

REPORT INFORMATION
  Report Type: Spontaneous
  Country: US (occurrence: US)
  Receive Date: 20200721
  Receipt Date: 20200721
  Transmission Date: 20201103
  Serious: Yes (Death)
  Sender: FDA-Public Use
  Company Number: None

PATIENT
  Age: 4 Year
  Sex: Female
  Weight: 24.6 kg

DRUGS (4)
  1. DEXAMETHASONE. [Suspect]
     Active Substance: DEXAMETHASONE
     Dates: end: 20200709
  2. ONCASPAR [Suspect]
     Active Substance: PEGASPARGASE
     Dates: end: 20200705
  3. CYTARABINE. [Suspect]
     Active Substance: CYTARABINE
     Dates: end: 20200701
  4. VINCRISTINE SULFATE. [Suspect]
     Active Substance: VINCRISTINE SULFATE
     Dates: end: 20200702

REACTIONS (16)
  - Blood lactic acid increased [None]
  - Decreased activity [None]
  - Blood sodium decreased [None]
  - Bruxism [None]
  - Acute kidney injury [None]
  - Thrombosis [None]
  - Seizure [None]
  - Pleural effusion [None]
  - Tachypnoea [None]
  - Multi-organ disorder [None]
  - Pyrexia [None]
  - Tachycardia [None]
  - Mucormycosis [None]
  - Clostridium test positive [None]
  - Abdominal compartment syndrome [None]
  - Disseminated intravascular coagulation [None]

NARRATIVE: CASE EVENT DATE: 20200719
